FAERS Safety Report 20092684 (Version 1)
Quarter: 2021Q4

REPORT INFORMATION
  Report Type: Spontaneous
  Country: FR (occurrence: FR)
  Receive Date: 20211120
  Receipt Date: 20211120
  Transmission Date: 20220303
  Serious: Yes (Hospitalization, Other)
  Sender: FDA-Public Use
  Company Number: FR-AFSSAPS-PB20216880

PATIENT
  Age: 40 Year
  Sex: Male

DRUGS (2)
  1. NAPROXEN [Suspect]
     Active Substance: NAPROXEN
     Indication: Toothache
     Dosage: 550 MILLIGRAM (1 CP X2/J PENDANT 2J)
     Route: 048
     Dates: start: 20210923
  2. BENORILATE [Concomitant]
     Active Substance: BENORILATE
     Indication: Toothache
     Dosage: 2 GRAM (2 G/J)
     Route: 048
     Dates: start: 20210923

REACTIONS (1)
  - Oedematous pancreatitis [Unknown]

NARRATIVE: CASE EVENT DATE: 20210924
